FAERS Safety Report 8603922 (Version 7)
Quarter: 2013Q1

REPORT INFORMATION
  Report Type: Spontaneous
  Country: US (occurrence: US)
  Receive Date: 20120607
  Receipt Date: 20130319
  Transmission Date: 20140127
  Serious: Yes (Hospitalization, Other)
  Sender: FDA-Public Use
  Company Number: US-BAYER-2012-056034

PATIENT
  Age: 69 Year
  Sex: Male

DRUGS (48)
  1. KOGENATE FS [Suspect]
     Dosage: 1024 IU, UNK
     Route: 042
     Dates: start: 201112, end: 201112
  2. KOGENATE FS [Suspect]
     Dosage: CONTINUOUS INFUSIONS
     Route: 042
     Dates: start: 201102, end: 201102
  3. KOGENATE FS [Suspect]
     Dosage: PROPHYLAXIS
     Route: 042
     Dates: start: 201202
  4. KOGENATE FS [Suspect]
     Dosage: CONTINUOUS INFUSION
     Route: 042
     Dates: start: 201203, end: 201203
  5. KOGENATE FS [Suspect]
     Dosage: PROPHYLAXIS FOR ONE MONTH
     Dates: start: 201203
  6. KOGENATE FS [Suspect]
     Dosage: PROPHYLAXIS FOR ONE MONTH
     Dates: start: 201203
  7. KOGENATE FS [Suspect]
     Dosage: CONTINUOUS INFUSION
     Dates: start: 201205
  8. KOGENATE FS [Suspect]
     Dosage: 5115U, 6840U,  3069U, 570U
     Dates: start: 20110614
  9. KOGENATE FS [Suspect]
     Dosage: 5115U, 6840U,  3069U, 570U
     Dates: start: 20110614
  10. KOGENATE FS [Suspect]
     Dosage: 1710U, 2046
     Dates: start: 20110615
  11. KOGENATE FS [Suspect]
     Dosage: 1710U, 2046
     Dates: start: 20110615
  12. KOGENATE FS [Suspect]
     Dosage: 1710U, 2046U
     Dates: start: 20110616
  13. KOGENATE FS [Suspect]
     Dosage: 1710U, 2046U
     Dates: start: 20110616
  14. KOGENATE FS [Suspect]
     Dosage: 3069U, 576 U
     Dates: start: 20110623
  15. KOGENATE FS [Suspect]
     Dosage: 3069U, 576 U
     Dates: start: 20110623
  16. KOGENATE FS [Suspect]
     Dosage: 4084 U,10636 U,8520U
     Dates: start: 20120209
  17. KOGENATE FS [Suspect]
     Dosage: 4084 U,10636 U,8520U
     Dates: start: 20120209
  18. KOGENATE FS [Suspect]
     Dosage: 2116 U, 2316 U,8520 U
     Dates: start: 20120209
  19. KOGENATE FS [Suspect]
     Dosage: 2130 U
     Dates: start: 20120210
  20. KOGENATE FS [Suspect]
     Dosage: 4096 U, 7147 U
     Dates: start: 20120211
  21. KOGENATE FS [Suspect]
     Dosage: 4096 U, 7147 U
     Dates: start: 20120211
  22. KOGENATE FS [Suspect]
     Dosage: 528 U, 6848 U
     Dates: start: 20120211
  23. KOGENATE FS [Suspect]
     Dosage: 528 U, 6848 U
     Dates: start: 20120211
  24. KOGENATE FS [Suspect]
     Dosage: 8192U, 528U
     Dates: start: 20120212
  25. KOGENATE FS [Suspect]
     Dosage: 8192U, 528U
     Dates: start: 20120212
  26. KOGENATE FS [Suspect]
     Dosage: 1024U, 520U
     Dates: start: 20120212
  27. KOGENATE FS [Suspect]
     Dosage: 1024U, 520U
     Dates: start: 20120212
  28. KOGENATE FS [Suspect]
     Dosage: 204 U
     Dates: start: 20120212
  29. KOGENATE FS [Suspect]
     Dosage: 10650U,10210U
     Dates: start: 20120213
  30. KOGENATE FS [Suspect]
     Dosage: 10650U,10210U
     Dates: start: 20120213
  31. KOGENATE FS [Suspect]
     Dosage: 2042U,1024U
     Dates: start: 20120301
  32. KOGENATE FS [Suspect]
     Dosage: 2042U,1024U
     Dates: start: 20120301
  33. KOGENATE FS [Suspect]
     Dosage: 1978 U,1065U
     Dates: start: 20120301
  34. KOGENATE FS [Suspect]
     Dosage: 1978 U,1065U
     Dates: start: 20120301
  35. KOGENATE FS [Suspect]
     Dosage: 7168 U,14553U
     Dates: start: 20120302
  36. KOGENATE FS [Suspect]
     Dosage: 7168 U,14553U
     Dates: start: 20120302
  37. KOGENATE FS [Suspect]
     Dosage: UNK
     Dates: start: 20120302
  38. KOGENATE FS [Suspect]
     Dosage: 12696 U
     Dates: start: 20120303
  39. KOGENATE FS [Suspect]
     Dosage: 6144U, 13021U
     Dates: start: 20120304
  40. KOGENATE FS [Suspect]
     Dosage: 6144 U
     Dates: start: 20120305
  41. KOGENATE FS [Suspect]
     Dosage: 19646U , 9306U
     Dates: start: 20120515
  42. KOGENATE FS [Suspect]
     Dosage: 25850 U
     Dates: start: 20120316
  43. KOGENATE FS [Suspect]
     Dosage: 18612 U
     Dates: start: 20120317
  44. KOGENATE FS [Suspect]
     Dosage: 18612U, 264 U, 4136U
     Dates: start: 20120318
  45. KOGENATE FS [Suspect]
     Dosage: 18612U 4136U, 8576U,
     Dates: start: 20120520
  46. KOGENATE FS [Suspect]
     Dosage: 264 U
     Dates: start: 20120520
  47. KOGENATE FS [Suspect]
     Dosage: 9306U,8272U 1039U
     Dates: start: 20120522
  48. KOGENATE FS [Suspect]
     Dosage: 529 IU, UNK

REACTIONS (3)
  - Anti factor VIII antibody positive [None]
  - Chest pain [None]
  - Haematuria [None]
